FAERS Safety Report 8213750-6 (Version None)
Quarter: 2012Q1

REPORT INFORMATION
  Report Type: 
  Country: None (occurrence: None)
  Receive Date: 20120316
  Receipt Date: 20120308
  Transmission Date: 20120608
  Serious: Yes (Other)
  Sender: FDA-Public Use
  Company Number: US-BRISTOL-MYERS SQUIBB COMPANY-14620595

PATIENT
  Age: 64 Year
  Sex: Female
  Weight: 60 kg

DRUGS (7)
  1. KETOPROFEN [Concomitant]
  2. PREDNISONE TAB [Concomitant]
  3. SULFADIAZINE [Concomitant]
  4. PLAQUENIL [Concomitant]
  5. ORENCIA [Suspect]
     Indication: RHEUMATOID ARTHRITIS
     Dosage: STARTED APPROX 2-3 MONTHS AGO;
     Route: 042
     Dates: start: 20090101
  6. PREDNIMUSTINE [Suspect]
     Indication: RHEUMATOID ARTHRITIS
     Dates: start: 20071201
  7. MINOCYCLINE HCL [Concomitant]

REACTIONS (2)
  - ARTHROPATHY [None]
  - HERPES ZOSTER [None]
